FAERS Safety Report 4555620-0 (Version None)
Quarter: 2005Q1

REPORT INFORMATION
  Report Type: 
  Country: None (occurrence: None)
  Receive Date: 20041228
  Receipt Date: 20040416
  Transmission Date: 20050727
  Serious: Yes (Disabling)
  Sender: FDA-Public Use
  Company Number: PHEH2004US02990

PATIENT
  Age: 60 Year
  Sex: Female

DRUGS (11)
  1. AREDIA [Suspect]
     Indication: NON-SMALL CELL LUNG CANCER METASTATIC
     Dosage: 90 MG, QMO
     Dates: start: 19971001, end: 20040101
  2. OXYCODONE HCL [Concomitant]
  3. MORPHINE [Concomitant]
  4. PREMARIN [Concomitant]
  5. PROTONIX [Concomitant]
  6. CELEXA [Concomitant]
  7. NAPROSYN [Concomitant]
  8. LIPITOR [Concomitant]
  9. SYNTHROID [Concomitant]
  10. ALBUTEROL [Concomitant]
  11. PREVACID [Concomitant]

REACTIONS (3)
  - BONE DISORDER [None]
  - BONE FORMATION DECREASED [None]
  - BONE PAIN [None]
